FAERS Safety Report 15266277 (Version 2)
Quarter: 2018Q3

REPORT INFORMATION
  Report Type: Spontaneous
  Country: BR (occurrence: BR)
  Receive Date: 20180810
  Receipt Date: 20180920
  Transmission Date: 20181010
  Serious: Yes (Other)
  Sender: FDA-Public Use
  Company Number: BR-PFIZER INC-2018309187

PATIENT
  Age: 30 Year
  Sex: Male

DRUGS (2)
  1. ELIFORE [Suspect]
     Active Substance: DESVENLAFAXINE SUCCINATE
     Indication: DEPRESSION
     Dosage: 50MG 1X/DAY, AT 5 P.M
     Dates: start: 20180719, end: 201808
  2. PASSIFLORA EXTRACT [Concomitant]
     Active Substance: HERBALS\HOMEOPATHICS\PASSIFLORA INCARNATA FLOWER
     Dosage: UNK
     Dates: start: 201807

REACTIONS (6)
  - Condition aggravated [Not Recovered/Not Resolved]
  - Depressed mood [Not Recovered/Not Resolved]
  - Suicidal ideation [Recovered/Resolved]
  - Drug ineffective [Not Recovered/Not Resolved]
  - Abnormal behaviour [Not Recovered/Not Resolved]
  - Agitation [Not Recovered/Not Resolved]

NARRATIVE: CASE EVENT DATE: 201807
